FAERS Safety Report 24727312 (Version 1)
Quarter: 2024Q4

REPORT INFORMATION
  Report Type: Report from Study
  Country: IL (occurrence: IL)
  Receive Date: 20241212
  Receipt Date: 20241212
  Transmission Date: 20250114
  Serious: Yes (Other)
  Sender: ABBVIE
  Company Number: IL-ABBVIE-6040514

PATIENT
  Age: 15 Year
  Sex: Female

DRUGS (1)
  1. SKYRIZI [Suspect]
     Active Substance: RISANKIZUMAB-RZAA
     Indication: Product used for unknown indication
     Dosage: FORM STRENGTH: 600 MILLIGRAM
     Route: 058
     Dates: start: 20241016

REACTIONS (2)
  - Haematochezia [Not Recovered/Not Resolved]
  - Faecal calprotectin increased [Not Recovered/Not Resolved]

NARRATIVE: CASE EVENT DATE: 20240101
